FAERS Safety Report 15350841 (Version 1)
Quarter: 2018Q4

REPORT INFORMATION
  Report Type: Spontaneous
  Country: FR (occurrence: FR)
  Receive Date: 20180905
  Receipt Date: 20180905
  Transmission Date: 20190204
  Serious: Yes (Death, Hospitalization, Other)
  Sender: FDA-Public Use
  Company Number: FR-TEVA-2018-FR-951383

PATIENT
  Age: 59 Year
  Sex: Male
  Weight: 89 kg

DRUGS (7)
  1. SORIATANE [Suspect]
     Active Substance: ACITRETIN
     Indication: PSORIASIS
     Dosage: 50 MG DAILY INITIALLY THEN 20-50 MG DAILY
     Route: 048
     Dates: start: 1999, end: 2011
  2. ENBREL [Suspect]
     Active Substance: ETANERCEPT
     Dosage: 50 MG WEEKLY
     Route: 058
     Dates: start: 201209, end: 20121012
  3. METOJECT [Suspect]
     Active Substance: METHOTREXATE SODIUM
     Dosage: 20 MG, WEEKLY
     Route: 058
     Dates: start: 201112, end: 20120104
  4. ENBREL [Suspect]
     Active Substance: ETANERCEPT
     Indication: PSORIASIS
     Dosage: 50 MG, 2X/WEEK
     Route: 058
     Dates: start: 201203, end: 201209
  5. DERMOVAL (CLOBETASOL PROPIONATE) [Suspect]
     Active Substance: CLOBETASOL PROPIONATE
     Indication: PSORIASIS
     Dosage: UNK
     Route: 003
     Dates: start: 1999, end: 2012
  6. METOJECT [Suspect]
     Active Substance: METHOTREXATE SODIUM
     Dosage: 15 MG WEEKLY
     Route: 058
     Dates: start: 201110, end: 201112
  7. TAHOR [Concomitant]
     Active Substance: ATORVASTATIN CALCIUM
     Dosage: 1 DF, UNK
     Route: 048

REACTIONS (3)
  - Acute myeloid leukaemia [Fatal]
  - Neutrophil count decreased [Unknown]
  - Drug effect incomplete [Unknown]

NARRATIVE: CASE EVENT DATE: 201112
